FAERS Safety Report 12821476 (Version 8)
Quarter: 2017Q4

REPORT INFORMATION
  Report Type: Report from Study
  Country: US (occurrence: US)
  Receive Date: 20161006
  Receipt Date: 20171006
  Transmission Date: 20180320
  Serious: Yes (Death, Hospitalization)
  Sender: FDA-Public Use
  Company Number: US-ACTELION-A-US2015-123182

PATIENT
  Age: 79 Year
  Sex: Male

DRUGS (28)
  1. DUONEB [Concomitant]
     Active Substance: ALBUTEROL SULFATE\IPRATROPIUM BROMIDE
     Dosage: 5 PUFF, QD
     Route: 055
  2. PRAVASTATIN. [Concomitant]
     Active Substance: PRAVASTATIN
  3. POTASSIUM [Concomitant]
     Active Substance: POTASSIUM
  4. PREDNISONE. [Concomitant]
     Active Substance: PREDNISONE
     Dosage: 10 MG, UNK
     Route: 048
  5. ADVAIR HFA [Concomitant]
     Active Substance: FLUTICASONE PROPIONATE\SALMETEROL XINAFOATE
  6. COUMADIN [Concomitant]
     Active Substance: WARFARIN SODIUM
  7. PRAVACHOL [Concomitant]
     Active Substance: PRAVASTATIN SODIUM
  8. MUCINEX [Concomitant]
     Active Substance: GUAIFENESIN
     Dosage: 1200 MG, Q12HRS
     Route: 048
  9. CALCIUM [Concomitant]
     Active Substance: CALCIUM
  10. SPIRONOLACTONE. [Concomitant]
     Active Substance: SPIRONOLACTONE
  11. FUROSEMIDE. [Concomitant]
     Active Substance: FUROSEMIDE
  12. HYDROCODONE/ACETAMINOPHEN [Concomitant]
     Active Substance: ACETAMINOPHEN\HYDROCODONE
  13. WARFARIN [Concomitant]
     Active Substance: WARFARIN
  14. ALDACTONE [Concomitant]
     Active Substance: SPIRONOLACTONE
     Dosage: 25 MG, BID
  15. ZOCOR [Concomitant]
     Active Substance: SIMVASTATIN
  16. XANAX [Concomitant]
     Active Substance: ALPRAZOLAM
  17. TRACLEER [Suspect]
     Active Substance: BOSENTAN
     Indication: PULMONARY ARTERIAL HYPERTENSION
     Dosage: 125 MG, BID
     Route: 048
     Dates: start: 20130312, end: 20170924
  18. PRILOSEC [Concomitant]
     Active Substance: OMEPRAZOLE MAGNESIUM
  19. METFORMIN [Concomitant]
     Active Substance: METFORMIN HYDROCHLORIDE
     Dosage: 1000 MG, BID
     Route: 048
  20. ALPRAZOLAM. [Concomitant]
     Active Substance: ALPRAZOLAM
  21. ALBUTEROL. [Concomitant]
     Active Substance: ALBUTEROL
  22. ISOSORBIDE. [Concomitant]
     Active Substance: ISOSORBIDE
     Dosage: 30 MG, BID
     Route: 048
  23. GLIPIZIDE. [Concomitant]
     Active Substance: GLIPIZIDE
     Dosage: 10 MG, QD
     Route: 048
  24. FLOMAX [Concomitant]
     Active Substance: TAMSULOSIN HYDROCHLORIDE
  25. NITROSTAT [Concomitant]
     Active Substance: NITROGLYCERIN
  26. FLONASE [Concomitant]
     Active Substance: FLUTICASONE PROPIONATE
  27. TORSEMIDE. [Concomitant]
     Active Substance: TORSEMIDE
  28. OMEPRAZOLE. [Concomitant]
     Active Substance: OMEPRAZOLE

REACTIONS (19)
  - Constipation [Recovered/Resolved]
  - International normalised ratio increased [Unknown]
  - Disease progression [Fatal]
  - Staphylococcal infection [Not Recovered/Not Resolved]
  - Lower respiratory tract infection [Unknown]
  - Bronchitis [Unknown]
  - Transfusion [Unknown]
  - Drug dose omission [Unknown]
  - Joint injury [Unknown]
  - Chronic obstructive pulmonary disease [Unknown]
  - Anaemia [Unknown]
  - Hypothrombinaemia [Unknown]
  - Fatigue [Not Recovered/Not Resolved]
  - Pneumonia [Recovered/Resolved]
  - Wound infection staphylococcal [Unknown]
  - Cardiac disorder [Recovered/Resolved]
  - Haemoglobin decreased [Unknown]
  - Pulmonary arterial hypertension [Fatal]
  - Condition aggravated [Unknown]

NARRATIVE: CASE EVENT DATE: 201508
